FAERS Safety Report 10304248 (Version 2)
Quarter: 2014Q4

REPORT INFORMATION
  Report Type: Spontaneous
  Country: CH (occurrence: CH)
  Receive Date: 20140714
  Receipt Date: 20141003
  Transmission Date: 20150528
  Serious: Yes (Other)
  Sender: FDA-Public Use
  Company Number: CH-009507513-1407CHE004616

PATIENT
  Age: 28 Year
  Sex: Male
  Weight: 100 kg

DRUGS (14)
  1. MIRTAZAPINE. [Suspect]
     Active Substance: MIRTAZAPINE
     Dosage: 30 MG, UNK
     Route: 048
     Dates: start: 20130917, end: 201406
  2. LYRICA [Suspect]
     Active Substance: PREGABALIN
     Dosage: 600 MG, DAILY
  3. TEMESTA [Suspect]
     Active Substance: LORAZEPAM
     Dosage: 5 MG DAILY
  4. ZYPREXA [Suspect]
     Active Substance: OLANZAPINE
     Dosage: 10 MG, DAILY
  5. VENLAFAXINE [Suspect]
     Active Substance: VENLAFAXINE HYDROCHLORIDE
     Dosage: 75 MG, ONCE DAILY
     Route: 048
     Dates: start: 201310, end: 20131029
  6. VENLAFAXINE [Suspect]
     Active Substance: VENLAFAXINE HYDROCHLORIDE
     Dosage: 150 MG, ONCE DAILY
     Route: 048
     Dates: start: 20131030, end: 20140105
  7. DIPIPERON [Suspect]
     Active Substance: PIPAMPERONE
     Dosage: 40 MG FOUR TIMES A DAY, AS NEEDED
  8. PRAZINE [Suspect]
     Active Substance: PROMAZINE HYDROCHLORIDE
     Dosage: 100 MG, ONCE DAILY
  9. VENLAFAXINE [Suspect]
     Active Substance: VENLAFAXINE HYDROCHLORIDE
     Dosage: 262.5 MG, ONCE DAILY
     Dates: start: 20140603
  10. STILNOX [Suspect]
     Active Substance: ZOLPIDEM TARTRATE
     Indication: INSOMNIA
     Dosage: 10 MG, ONCE DAILY
     Dates: start: 20130917
  11. VENLAFAXINE [Suspect]
     Active Substance: VENLAFAXINE HYDROCHLORIDE
     Dosage: 225 MG, ONCE DAILY
     Route: 048
     Dates: start: 20140106, end: 20140602
  12. VENLAFAXINE [Suspect]
     Active Substance: VENLAFAXINE HYDROCHLORIDE
     Indication: DEPRESSION
     Dosage: 150 MG, ONCE DAILY
     Route: 048
     Dates: start: 201306, end: 20131004
  13. DIPIPERON [Suspect]
     Active Substance: PIPAMPERONE
     Dosage: 120 MG AS NEEDED
     Dates: start: 20130917
  14. XANAX [Suspect]
     Active Substance: ALPRAZOLAM
     Dosage: 2 MG, DAILY

REACTIONS (2)
  - Shoulder operation [Unknown]
  - Shoulder operation [Unknown]

NARRATIVE: CASE EVENT DATE: 201311
